FAERS Safety Report 15951279 (Version 1)
Quarter: 2019Q1

REPORT INFORMATION
  Report Type: Spontaneous
  Country: GB (occurrence: GB)
  Receive Date: 20190212
  Receipt Date: 20190212
  Transmission Date: 20190417
  Serious: Yes (Death, Other)
  Sender: FDA-Public Use
  Company Number: GB-PFIZER INC-2019061704

PATIENT
  Age: 72 Year
  Sex: Male
  Weight: 80 kg

DRUGS (10)
  1. FENTANYL. [Concomitant]
     Active Substance: FENTANYL
  2. ROCURONIUM BROMIDE. [Suspect]
     Active Substance: ROCURONIUM BROMIDE
     Indication: ANAESTHESIA
     Dosage: 40 MG, UNK
     Route: 042
     Dates: start: 20181008, end: 20181008
  3. PROPOFOL. [Concomitant]
     Active Substance: PROPOFOL
  4. MOXONIDINE [Concomitant]
     Active Substance: MOXONIDINE
  5. LOSARTAN. [Concomitant]
     Active Substance: LOSARTAN
  6. ATENOLOL. [Concomitant]
     Active Substance: ATENOLOL
  7. METFORMIN [Concomitant]
     Active Substance: METFORMIN HYDROCHLORIDE
  8. CO-AMOXICLAV [AMOXICILLIN SODIUM;CLAVULANATE POTASSIUM] [Suspect]
     Active Substance: AMOXICILLIN\CLAVULANATE POTASSIUM
     Indication: SURGERY
     Dosage: 600 MG, UNK
     Route: 042
     Dates: start: 20181008, end: 20181008
  9. GLICLAZIDE [Concomitant]
     Active Substance: GLICLAZIDE
  10. AMLODIPINE [Concomitant]
     Active Substance: AMLODIPINE BESYLATE

REACTIONS (2)
  - Cardiac arrest [Fatal]
  - Anaphylactic shock [Fatal]

NARRATIVE: CASE EVENT DATE: 20181008
